FAERS Safety Report 4612074-3 (Version None)
Quarter: 2005Q1

REPORT INFORMATION
  Report Type: 
  Country: None (occurrence: None)
  Receive Date: 20050308
  Receipt Date: 20041129
  Transmission Date: 20050727
  Serious: Yes (Other)
  Sender: FDA-Public Use
  Company Number: 2004UW24424

PATIENT
  Age: 66 Year
  Sex: Male
  Weight: 86.182 kg

DRUGS (4)
  1. CRESTOR [Suspect]
  2. NEXIUM [Suspect]
     Indication: GASTROOESOPHAGEAL REFLUX DISEASE
     Dosage: 40 MG DAILY PO
     Route: 048
  3. VIAGRA [Concomitant]
  4. ALLOPURINOL [Concomitant]

REACTIONS (1)
  - ERECTILE DYSFUNCTION [None]
